FAERS Safety Report 9866609 (Version 1)
Quarter: 2014Q1

REPORT INFORMATION
  Report Type: Spontaneous
  Country: US (occurrence: US)
  Receive Date: 20140204
  Receipt Date: 20140204
  Transmission Date: 20141002
  Serious: No
  Sender: FDA-Public Use
  Company Number: US-BIOGENIDEC-2014BI010724

PATIENT
  Age: 70 Year
  Sex: Female

DRUGS (14)
  1. AVONEX [Suspect]
     Indication: MULTIPLE SCLEROSIS
     Route: 030
     Dates: start: 20081006
  2. OXYBUTININ [Concomitant]
  3. CHLORTHALIDONE [Concomitant]
  4. METOPROLOL [Concomitant]
  5. METFORMIN [Concomitant]
  6. GABAPENTIN [Concomitant]
  7. OMEPRAZOLE [Concomitant]
  8. JANUVIA [Concomitant]
  9. SIMVASTATIN [Concomitant]
  10. CO Q 10 [Concomitant]
  11. VITAMIN B 12 [Concomitant]
  12. SERTRALINE [Concomitant]
  13. AZELASTINE [Concomitant]
  14. CALCIUM [Concomitant]

REACTIONS (6)
  - Sinusitis [Not Recovered/Not Resolved]
  - Ear haemorrhage [Recovered/Resolved]
  - Incontinence [Not Recovered/Not Resolved]
  - Chronic sinusitis [Not Recovered/Not Resolved]
  - Rhinorrhoea [Not Recovered/Not Resolved]
  - Fatigue [Not Recovered/Not Resolved]
